FAERS Safety Report 21487041 (Version 1)
Quarter: 2022Q4

REPORT INFORMATION
  Report Type: Report from Study
  Country: US (occurrence: US)
  Receive Date: 20221020
  Receipt Date: 20221020
  Transmission Date: 20230113
  Serious: No
  Sender: FDA-Public Use
  Company Number: US-ABBVIE-4157197

PATIENT
  Sex: Female

DRUGS (1)
  1. VENCLEXTA [Suspect]
     Active Substance: VENETOCLAX
     Indication: Acute myeloid leukaemia
     Route: 048
     Dates: start: 202209

REACTIONS (6)
  - Dry eye [Unknown]
  - Dizziness [Unknown]
  - Dry mouth [Unknown]
  - Arthralgia [Unknown]
  - Corneal abrasion [Unknown]
  - Feeling abnormal [Unknown]
